FAERS Safety Report 4450569-6 (Version None)
Quarter: 2004Q3

REPORT INFORMATION
  Report Type: 
  Country: None (occurrence: None)
  Receive Date: 20040914
  Receipt Date: 20040830
  Transmission Date: 20050211
  Serious: Yes (Hospitalization)
  Sender: FDA-Public Use
  Company Number: 04P-163-0271835-00

PATIENT
  Age: 55 Year
  Sex: Male
  Weight: 90.7194 kg

DRUGS (17)
  1. HUMIRA [Suspect]
     Indication: CROHN'S DISEASE
     Dosage: 40 MG, EVERY SEVEN TO TEN DAYS, SUBCUTANEOUS
     Route: 058
     Dates: start: 20030101
  2. HUMIRA [Suspect]
     Indication: RHEUMATOID ARTHRITIS
     Dosage: 40 MG, EVERY SEVEN TO TEN DAYS, SUBCUTANEOUS
     Route: 058
     Dates: start: 20030101
  3. AZATHIOPRINE [Concomitant]
  4. SULFASALAZINE [Concomitant]
  5. MESALAMINE [Concomitant]
  6. PREDNISONE [Concomitant]
  7. FOLIC ACID [Concomitant]
  8. GABAPENTIN [Concomitant]
  9. FLOMAX [Concomitant]
  10. HYDRALAZINE HCL [Concomitant]
  11. TIZANIDINE HYDROCHLORIDE [Concomitant]
  12. OXYCONTIN [Concomitant]
  13. FENTANYL [Concomitant]
  14. FUROSEMIDE [Concomitant]
  15. TIZANIDINE HCL [Concomitant]
  16. FENTANYL CITRATE [Concomitant]
  17. ALPRAZOLAM [Concomitant]

REACTIONS (10)
  - CROHN'S DISEASE [None]
  - DISSOCIATION [None]
  - DRUG LEVEL INCREASED [None]
  - EXOSTOSIS [None]
  - FLUSHING [None]
  - INTESTINAL OBSTRUCTION [None]
  - OROPHARYNGEAL SWELLING [None]
  - RENAL FAILURE [None]
  - SPINAL DISORDER [None]
  - WEIGHT DECREASED [None]
